FAERS Safety Report 19906319 (Version 1)
Quarter: 2021Q3

REPORT INFORMATION
  Report Type: Spontaneous
  Country: US (occurrence: US)
  Receive Date: 20210930
  Receipt Date: 20210930
  Transmission Date: 20211014
  Serious: Yes (Hospitalization)
  Sender: FDA-Public Use
  Company Number: US-ASTRAZENECA-2021A738006

PATIENT
  Age: 44 Year
  Sex: Female
  Weight: 90.3 kg

DRUGS (1)
  1. BUDESONIDE AND FORMOTEROL [Suspect]
     Active Substance: BUDESONIDE\FORMOTEROL
     Indication: PNEUMONIA
     Dosage: 80/4.5 MCG, 2 PUFFS TWICE EACH DAY AS NEEDED AS REQUIRED
     Route: 055
     Dates: start: 202105

REACTIONS (7)
  - COVID-19 [Recovering/Resolving]
  - COVID-19 pneumonia [Recovering/Resolving]
  - Ill-defined disorder [Recovering/Resolving]
  - Device malfunction [Unknown]
  - Off label use [Not Recovered/Not Resolved]
  - Product use issue [Not Recovered/Not Resolved]
  - Product dose omission issue [Not Recovered/Not Resolved]

NARRATIVE: CASE EVENT DATE: 2021
